FAERS Safety Report 17925405 (Version 1)
Quarter: 2020Q2

REPORT INFORMATION
  Report Type: Report from Study
  Country: None (occurrence: BE)
  Receive Date: 20200623
  Receipt Date: 20200623
  Transmission Date: 20200714
  Serious: Yes (Disabling)
  Sender: FDA-Public Use
  Company Number: BE-ABBVIE-19K-013-2863900-00

PATIENT
  Sex: Female

DRUGS (12)
  1. DUODOPA [Suspect]
     Active Substance: CARBIDOPA\LEVODOPA
     Indication: PARKINSON^S DISEASE
     Dosage: MD= 3.5ML, CD= 2.8ML/HR DURING 16HRS, ED= 3.5ML, ND= 1.8ML/HR DURING 8HRS
     Route: 050
     Dates: start: 20130422, end: 20130426
  2. LEPONEX [Concomitant]
     Active Substance: CLOZAPINE
     Indication: PRODUCT USED FOR UNKNOWN INDICATION
  3. DUODOPA [Suspect]
     Active Substance: CARBIDOPA\LEVODOPA
     Dosage: MD= 3ML, CD= 2.4ML/HR DURING 16HRS, ED= 1.5ML
     Route: 050
     Dates: start: 20190521, end: 20190716
  4. PROLOPA [Concomitant]
     Active Substance: BENSERAZIDE\LEVODOPA
     Indication: PRODUCT USED FOR UNKNOWN INDICATION
     Dosage: FORM STRENGTH: 100MG/25MG; UNIT DOSE: 1 TABLET (RESCUE MEDICATION)
  5. TEMESTA [Concomitant]
     Indication: PRODUCT USED FOR UNKNOWN INDICATION
     Dosage: MAXIMUM 2 TIMES A DAY
  6. DUODOPA [Suspect]
     Active Substance: CARBIDOPA\LEVODOPA
     Dosage: MD= 3ML, CD= 2.7ML/HR DURING 16HRS, ED= 1.5ML
     Route: 050
     Dates: start: 20191014, end: 20191029
  7. DUODOPA [Suspect]
     Active Substance: CARBIDOPA\LEVODOPA
     Dosage: MD= 3ML, CD= 2.5ML/HR DURING 16HRS, ED= 1.5ML
     Route: 050
     Dates: start: 20191029
  8. LYRICA [Concomitant]
     Active Substance: PREGABALIN
     Indication: PRODUCT USED FOR UNKNOWN INDICATION
  9. DUODOPA [Suspect]
     Active Substance: CARBIDOPA\LEVODOPA
     Dosage: DOSES CONTINUOUSLY MONITORED AND ADAPTED
     Route: 050
     Dates: start: 20130426, end: 20190521
  10. DUODOPA [Suspect]
     Active Substance: CARBIDOPA\LEVODOPA
     Dosage: MD= 3ML, CD= 2.6ML/HR DURING 16HRS, ED= 1.5ML
     Route: 050
     Dates: start: 20190716, end: 20191014
  11. CORDARONE [Concomitant]
     Active Substance: AMIODARONE HYDROCHLORIDE
     Indication: PRODUCT USED FOR UNKNOWN INDICATION
  12. FLUDROCORTISON [Concomitant]
     Active Substance: FLUDROCORTISONE
     Indication: PRODUCT USED FOR UNKNOWN INDICATION

REACTIONS (6)
  - Gait disturbance [Unknown]
  - Depression [Unknown]
  - Dysstasia [Unknown]
  - Mobility decreased [Unknown]
  - Bedridden [Unknown]
  - Dyskinesia [Recovering/Resolving]
